FAERS Safety Report 10009941 (Version 1)
Quarter: 2014Q1

REPORT INFORMATION
  Report Type: Spontaneous
  Country: US (occurrence: US)
  Receive Date: 20140312
  Receipt Date: 20140312
  Transmission Date: 20141002
  Serious: No
  Sender: FDA-Public Use
  Company Number: US-INCYTE CORPORATION-2013IN000775

PATIENT
  Sex: Female
  Weight: 53.52 kg

DRUGS (6)
  1. JAKAFI [Suspect]
     Indication: MYELOFIBROSIS
     Dosage: 10 MG, BID
  2. CARVEDILOL [Concomitant]
     Dosage: 12.5 MG
  3. LEVOTHYROXIN [Concomitant]
     Dosage: 75 MCG
  4. LEXAPRO [Concomitant]
     Dosage: 10 MG
  5. FISH OIL [Concomitant]
  6. MULTIVITAMIN [Concomitant]

REACTIONS (7)
  - Night sweats [Unknown]
  - Diarrhoea [Unknown]
  - Myalgia [Unknown]
  - Fatigue [Unknown]
  - Nightmare [Unknown]
  - Headache [Unknown]
  - Weight increased [Unknown]
